FAERS Safety Report 11374990 (Version 2)
Quarter: 2015Q3

REPORT INFORMATION
  Report Type: Report from Study
  Country: US (occurrence: US)
  Receive Date: 20150813
  Receipt Date: 20150928
  Transmission Date: 20151125
  Serious: Yes (Other)
  Sender: FDA-Public Use
  Company Number: PHEH2014US005950

PATIENT
  Sex: Female
  Weight: 74.83 kg

DRUGS (9)
  1. GILENYA [Suspect]
     Active Substance: FINGOLIMOD HYDROCHLORIDE
     Dosage: 0.5 MG, QD
     Route: 048
     Dates: start: 20141106
  2. GILENYA [Suspect]
     Active Substance: FINGOLIMOD HYDROCHLORIDE
     Dosage: 0.5 MG, QD
     Route: 048
     Dates: start: 20141116
  3. ALEVE [Concomitant]
     Active Substance: NAPROXEN SODIUM
     Indication: PRODUCT USED FOR UNKNOWN INDICATION
     Dosage: 1 DF (220 MG), BID
     Route: 048
  4. GILENYA [Suspect]
     Active Substance: FINGOLIMOD HYDROCHLORIDE
     Indication: MULTIPLE SCLEROSIS
     Dosage: 0.5 MG, QD
     Route: 048
     Dates: start: 20120109, end: 201402
  5. DEPO-PROVERA [Concomitant]
     Active Substance: MEDROXYPROGESTERONE ACETATE
     Indication: PRODUCT USED FOR UNKNOWN INDICATION
     Dosage: (EVERY 3 MONTHS)
     Route: 065
  6. CYMBALTA [Concomitant]
     Active Substance: DULOXETINE HYDROCHLORIDE
     Indication: PAIN
  7. GILENYA [Suspect]
     Active Substance: FINGOLIMOD HYDROCHLORIDE
     Dosage: 0.5 MG, QOD
     Route: 048
  8. CYMBALTA [Concomitant]
     Active Substance: DULOXETINE HYDROCHLORIDE
     Indication: DEPRESSION
     Dosage: 1 DF (60 MG), IN MORNING WITH FOOD
     Route: 048
  9. CYMBALTA [Concomitant]
     Active Substance: DULOXETINE HYDROCHLORIDE
     Indication: NEURALGIA

REACTIONS (35)
  - Negative thoughts [Unknown]
  - Cardiovascular insufficiency [Unknown]
  - Joint swelling [Unknown]
  - Fine motor skill dysfunction [Not Recovered/Not Resolved]
  - Blood disorder [Unknown]
  - Peripheral swelling [Unknown]
  - Musculoskeletal stiffness [Not Recovered/Not Resolved]
  - Balance disorder [Not Recovered/Not Resolved]
  - Optic neuritis [Unknown]
  - Urinary incontinence [Unknown]
  - Muscle atrophy [Unknown]
  - Somnolence [Unknown]
  - Muscle tightness [Not Recovered/Not Resolved]
  - Stress [Unknown]
  - Peroneal nerve palsy [Unknown]
  - Dupuytren^s contracture [Not Recovered/Not Resolved]
  - Oedema peripheral [Unknown]
  - Urinary tract infection [Unknown]
  - Intentional underdose [Unknown]
  - Secondary progressive multiple sclerosis [Unknown]
  - Eye pain [Unknown]
  - Back pain [Unknown]
  - White matter lesion [Unknown]
  - Retinal disorder [Unknown]
  - Paraesthesia [Not Recovered/Not Resolved]
  - Skin discolouration [Unknown]
  - Dry eye [Unknown]
  - Myelitis transverse [Unknown]
  - Abnormal behaviour [Unknown]
  - Bilirubin conjugated increased [Unknown]
  - Muscle spasticity [Not Recovered/Not Resolved]
  - Paraparesis [Unknown]
  - Muscle spasms [Unknown]
  - Hepatic enzyme abnormal [Unknown]
  - Full blood count abnormal [Unknown]

NARRATIVE: CASE EVENT DATE: 2014
